FAERS Safety Report 13402074 (Version 1)
Quarter: 2017Q2

REPORT INFORMATION
  Report Type: Spontaneous
  Country: US (occurrence: US)
  Receive Date: 20170404
  Receipt Date: 20170404
  Transmission Date: 20170830
  Serious: Yes (Other)
  Sender: FDA-Public Use
  Company Number: US-BAYER-2017-058603

PATIENT
  Age: 17 Year
  Sex: Female

DRUGS (1)
  1. MIRENA [Suspect]
     Active Substance: LEVONORGESTREL
     Indication: MENSTRUAL CYCLE MANAGEMENT
     Dosage: 20 MCG/24HR, CONT
     Route: 015
     Dates: start: 20170217, end: 20170323

REACTIONS (6)
  - Genital haemorrhage [None]
  - Abdominal pain lower [None]
  - Device expulsion [None]
  - Pyrexia [None]
  - Nausea [None]
  - Chills [None]

NARRATIVE: CASE EVENT DATE: 201703
